FAERS Safety Report 7575679-6 (Version None)
Quarter: 2011Q2

REPORT INFORMATION
  Report Type: 
  Country: None (occurrence: None)
  Receive Date: 20110628
  Receipt Date: 20110621
  Transmission Date: 20111010
  Serious: Yes (Hospitalization)
  Sender: FDA-Public Use
  Company Number: US-BIOGENIDEC-2011BI017426

PATIENT
  Age: 67 Year
  Sex: Female

DRUGS (3)
  1. GABAPENTIN [Concomitant]
  2. TYSABRI [Suspect]
     Indication: MULTIPLE SCLEROSIS
     Route: 042
     Dates: start: 20080101
  3. AMLODIPINE [Concomitant]

REACTIONS (2)
  - UPPER LIMB FRACTURE [None]
  - FALL [None]
